FAERS Safety Report 19023096 (Version 1)
Quarter: 2021Q1

REPORT INFORMATION
  Report Type: Spontaneous
  Country: US (occurrence: US)
  Receive Date: 20210318
  Receipt Date: 20210318
  Transmission Date: 20210420
  Serious: Yes (Hospitalization, Other)
  Sender: FDA-Public Use
  Company Number: US-ASTRAZENECA-2021A137640

PATIENT
  Age: 51 Year
  Sex: Male
  Weight: 64.9 kg

DRUGS (10)
  1. CRESTOR [Suspect]
     Active Substance: ROSUVASTATIN CALCIUM
     Indication: MYOCARDIAL INFARCTION
     Route: 048
     Dates: start: 2010
  2. FISH OIL [Concomitant]
     Active Substance: FISH OIL
  3. MVI [Concomitant]
     Active Substance: VITAMINS
  4. FEROUS SULFATE [Concomitant]
     Indication: RED BLOOD CELL COUNT DECREASED
  5. NITROSTAT [Concomitant]
     Active Substance: NITROGLYCERIN
     Indication: BLOOD PRESSURE MEASUREMENT
  6. PLAVIX [Concomitant]
     Active Substance: CLOPIDOGREL BISULFATE
     Indication: STENT PLACEMENT
  7. ECOTRIN [Concomitant]
     Active Substance: ASPIRIN
  8. VIT B [Concomitant]
     Active Substance: VITAMIN B
  9. ENALAPRIL MALATE [Concomitant]
  10. CARVEDILOL. [Concomitant]
     Active Substance: CARVEDILOL

REACTIONS (10)
  - Hepatic failure [Unknown]
  - Contusion [Unknown]
  - Ejection fraction decreased [Unknown]
  - Pulmonary embolism [Unknown]
  - Red blood cell count decreased [Recovered/Resolved]
  - Blood pressure decreased [Unknown]
  - Renal failure [Unknown]
  - Pericardial disease [Unknown]
  - Circulatory collapse [Unknown]
  - Blood potassium increased [Recovered/Resolved]

NARRATIVE: CASE EVENT DATE: 2010
